FAERS Safety Report 9914293 (Version 2)
Quarter: 2014Q2

REPORT INFORMATION
  Report Type: Spontaneous
  Country: GB (occurrence: None)
  Receive Date: 20140218
  Receipt Date: 20140409
  Transmission Date: 20141212
  Serious: Yes (Hospitalization, Other)
  Sender: FDA-Public Use
  Company Number: KAD201402-000157

PATIENT
  Age: 66 Year
  Sex: Male

DRUGS (7)
  1. RIBAVIRIN [Suspect]
     Indication: HEPATITIS C
     Route: 048
  2. PEGASYS (PEGINTERFERON ALFA-2A) [Suspect]
     Indication: HEPATITIS C
     Dosage: INJECTION, SUBCUTANEOUS
     Route: 058
  3. INCIVO [Suspect]
     Indication: HEPATITIS C
     Route: 048
  4. LOSARTAN (LOSARTAN) [Concomitant]
  5. AMLODIPINE (AMLODIPINE) [Concomitant]
  6. AMITRYPTANE (AMITRIYPTANE) [Concomitant]
  7. ALL OTHER THERAPEUTIC PRODUCTS (ALL OTHER THERAPEUTIC PRODUCTS) [Concomitant]

REACTIONS (2)
  - Rash [None]
  - Renal impairment [None]
